FAERS Safety Report 10108351 (Version 1)
Quarter: 2014Q2

REPORT INFORMATION
  Report Type: Spontaneous
  Country: IT (occurrence: IT)
  Receive Date: 20140425
  Receipt Date: 20140425
  Transmission Date: 20141212
  Serious: Yes (Hospitalization, Other)
  Sender: FDA-Public Use
  Company Number: IT-PAR PHARMACEUTICAL, INC-2014SCPR009026

PATIENT
  Sex: 0

DRUGS (5)
  1. HYDROXYUREA [Suspect]
     Indication: ESSENTIAL THROMBOCYTHAEMIA
     Dosage: 500 MG, / DAY
     Route: 065
  2. PREDNISOLONE [Suspect]
     Indication: DYSPNOEA
     Dosage: 40 MG, / DAY
     Route: 065
  3. PREDNISOLONE [Suspect]
     Indication: COUGH
  4. LEVOFLOXACIN [Concomitant]
     Indication: DYSPNOEA
     Dosage: 750 MG, / DAY
     Route: 065
  5. LEVOFLOXACIN [Concomitant]
     Indication: COUGH

REACTIONS (2)
  - Respiratory failure [Recovering/Resolving]
  - Interstitial lung disease [Recovering/Resolving]
